FAERS Safety Report 17159774 (Version 1)
Quarter: 2019Q4

REPORT INFORMATION
  Report Type: Spontaneous
  Country: CN (occurrence: CN)
  Receive Date: 20191216
  Receipt Date: 20191216
  Transmission Date: 20200122
  Serious: Yes (Other)
  Sender: FDA-Public Use
  Company Number: CN-ASTRAZENECA-2019SF80215

PATIENT
  Age: 794 Month
  Sex: Female
  Weight: 45 kg

DRUGS (1)
  1. IRESSA [Suspect]
     Active Substance: GEFITINIB
     Indication: LUNG ADENOCARCINOMA
     Route: 048
     Dates: start: 20190605, end: 20191206

REACTIONS (6)
  - Abdominal discomfort [Recovering/Resolving]
  - Nausea [Unknown]
  - Pruritus [Unknown]
  - Rash [Recovering/Resolving]
  - Vomiting [Unknown]
  - Cough [Unknown]

NARRATIVE: CASE EVENT DATE: 201906
